FAERS Safety Report 25223628 (Version 2)
Quarter: 2025Q2

REPORT INFORMATION
  Report Type: Spontaneous
  Country: JP (occurrence: JP)
  Receive Date: 20250422
  Receipt Date: 20250618
  Transmission Date: 20250717
  Serious: Yes (Disabling, Other)
  Sender: GILEAD
  Company Number: JP-GILEAD-2025-0710979

PATIENT
  Age: 70 Year
  Sex: Female

DRUGS (1)
  1. EPCLUSA [Suspect]
     Active Substance: SOFOSBUVIR\VELPATASVIR
     Indication: Hepatic cirrhosis
     Route: 065
     Dates: start: 20250404, end: 20250516

REACTIONS (3)
  - Renal impairment [Unknown]
  - Cryoglobulinaemia [Unknown]
  - Nephropathy [Unknown]

NARRATIVE: CASE EVENT DATE: 20250516
